FAERS Safety Report 6601711-X (Version None)
Quarter: 2010Q1

REPORT INFORMATION
  Report Type: 
  Country: None (occurrence: None)
  Receive Date: 20100225
  Receipt Date: 20100217
  Transmission Date: 20100710
  Serious: Yes (Hospitalization, Other)
  Sender: FDA-Public Use
  Company Number: US-RB-025063-09

PATIENT
  Age: 45 Year
  Sex: Female

DRUGS (3)
  1. SUBOXONE [Suspect]
     Indication: PAIN
     Route: 060
     Dates: start: 20070101, end: 20090401
  2. SUBOXONE [Suspect]
     Dosage: TOOK VARIOUS TAPERING DOSES
     Route: 060
     Dates: start: 20090401, end: 20091106
  3. SUBOXONE [Suspect]
     Dosage: UNKNOWN EXACT DOSING DETAILS
     Route: 060
     Dates: start: 20091110

REACTIONS (6)
  - DRUG DEPENDENCE [None]
  - DRUG WITHDRAWAL SYNDROME [None]
  - INSOMNIA [None]
  - NAUSEA [None]
  - PAIN [None]
  - SUICIDAL IDEATION [None]
